FAERS Safety Report 6785032-0 (Version None)
Quarter: 2010Q2

REPORT INFORMATION
  Report Type: 
  Country: None (occurrence: None)
  Receive Date: 20100622
  Receipt Date: 20100616
  Transmission Date: 20101027
  Serious: Yes (Death)
  Sender: FDA-Public Use
  Company Number: US-GILEAD-2010-0029895

PATIENT
  Age: 54 Year
  Sex: Female
  Weight: 15.89 kg

DRUGS (12)
  1. LETAIRIS [Suspect]
     Indication: PULMONARY ARTERIAL HYPERTENSION
     Route: 048
     Dates: start: 20071220
  2. REVATIO [Concomitant]
  3. OXYGEN [Concomitant]
  4. PREDNISONE [Concomitant]
  5. LISINOPRIL [Concomitant]
  6. BISOPROLOL FUMARATE AND HYDROCHLOROTHIAZIDE [Concomitant]
  7. CRESTOR [Concomitant]
  8. VENTAVIS [Concomitant]
  9. BACTRIM DS [Concomitant]
  10. METFORMIN [Concomitant]
  11. ACTOS [Concomitant]
  12. PRILOSEC [Concomitant]

REACTIONS (1)
  - DEATH [None]
